FAERS Safety Report 8790459 (Version 1)
Quarter: 2012Q4

REPORT INFORMATION
  Report Type: Spontaneous
  Country: US (occurrence: None)
  Receive Date: 20120911
  Receipt Date: 20120911
  Transmission Date: 20130627
  Serious: Yes (Hospitalization)
  Sender: FDA-Public Use
  Company Number: None

PATIENT
  Sex: Male
  Weight: 62 kg

DRUGS (2)
  1. CARBOPLATIN [Suspect]
     Dates: start: 20120830
  2. DOCETAXEL [Suspect]

REACTIONS (4)
  - Abdominal pain upper [None]
  - Dysphagia [None]
  - Nausea [None]
  - Candidiasis [None]
